FAERS Safety Report 16468660 (Version 1)
Quarter: 2019Q2

REPORT INFORMATION
  Report Type: Spontaneous
  Country: None (occurrence: KZ)
  Receive Date: 20190624
  Receipt Date: 20190624
  Transmission Date: 20190711
  Serious: Yes (Death)
  Sender: FDA-Public Use
  Company Number: KZ-AKRON, INC.-2069510

PATIENT
  Sex: Male

DRUGS (1)
  1. CAPASTAT SULFATE [Suspect]
     Active Substance: CAPREOMYCIN SULFATE

REACTIONS (2)
  - Chronic obstructive pulmonary disease [None]
  - Death [None]
